FAERS Safety Report 5235767-6 (Version None)
Quarter: 2007Q1

REPORT INFORMATION
  Report Type: 
  Country: None (occurrence: None)
  Receive Date: 20070212
  Receipt Date: 20070201
  Transmission Date: 20070707
  Serious: Yes (Hospitalization)
  Sender: FDA-Public Use
  Company Number: FR-AVENTIS-200613651FR

PATIENT
  Age: 80 Year
  Sex: Female

DRUGS (3)
  1. LOVENOX [Suspect]
     Route: 058
  2. PLAVIX [Suspect]
     Route: 048
  3. PERFALGAN [Suspect]
     Route: 042

REACTIONS (1)
  - DRUG ERUPTION [None]
